FAERS Safety Report 4361088-X (Version None)
Quarter: 2004Q2

REPORT INFORMATION
  Report Type: 
  Country: None (occurrence: None)
  Receive Date: 20040520
  Receipt Date: 20040510
  Transmission Date: 20050107
  Serious: Yes (Other)
  Sender: FDA-Public Use
  Company Number: GB-ROCHE-367123

PATIENT
  Age: 30 Year
  Sex: Female

DRUGS (3)
  1. ROACCUTANE [Suspect]
     Indication: HIDRADENITIS
     Dosage: GIVEN DAILY. STRENGTH REPORTED AS 20. NO UNITS PROVIDED.
     Route: 048
     Dates: start: 20040126, end: 20040423
  2. DIAMORIL [Concomitant]
     Indication: ACNE
     Route: 048
     Dates: start: 20040126
  3. CLINDAMYCIN HCL [Concomitant]
     Indication: HIDRADENITIS
     Dosage: STRENGTH REPORTED AS 300. NO UNITS PROVIDED.
     Route: 048
     Dates: start: 20040122

REACTIONS (1)
  - DEAFNESS [None]
